FAERS Safety Report 9814456 (Version 4)
Quarter: 2014Q1

REPORT INFORMATION
  Report Type: Spontaneous
  Country: JP (occurrence: JP)
  Receive Date: 20140113
  Receipt Date: 20140210
  Transmission Date: 20141002
  Serious: Yes (Death, Hospitalization)
  Sender: FDA-Public Use
  Company Number: JP-CELGENEUS-087-21660-14011539

PATIENT
  Age: 59 Year
  Sex: Male
  Weight: 82 kg

DRUGS (8)
  1. ABRAXANE [Suspect]
     Indication: METASTATIC SQUAMOUS CELL CARCINOMA
     Dosage: 190 MILLIGRAM
     Route: 041
     Dates: start: 20131129, end: 20131213
  2. CARBOPLATIN [Suspect]
     Indication: METASTATIC SQUAMOUS CELL CARCINOMA
     Dosage: 625 MILLIGRAM
     Route: 041
     Dates: start: 20131129, end: 20131129
  3. DEXART [Concomitant]
     Indication: PROPHYLAXIS OF NAUSEA AND VOMITING
     Dosage: 6.6 MILLIGRAM
     Route: 041
     Dates: start: 20131129, end: 20131129
  4. DEXART [Concomitant]
     Route: 041
     Dates: start: 20131213, end: 20131213
  5. GRANISETRON HYDROCHLORIDE [Concomitant]
     Indication: PROPHYLAXIS OF NAUSEA AND VOMITING
     Dosage: 3 MILLIGRAM
     Route: 041
     Dates: start: 20131129, end: 20131129
  6. AMLODIN [Concomitant]
     Indication: HYPERTENSION
     Dosage: 5 MILLIGRAM
     Route: 048
     Dates: start: 20131221
  7. ZYLORIC [Concomitant]
     Indication: HYPERURICAEMIA
     Dosage: 200 MILLIGRAM
     Route: 048
     Dates: start: 20131221
  8. URSO [Concomitant]
     Indication: LIVER DISORDER
     Dosage: 150 MILLIGRAM
     Route: 048
     Dates: start: 20131126, end: 20131202

REACTIONS (3)
  - Haemoptysis [Fatal]
  - Haemoptysis [Recovering/Resolving]
  - Pneumonia [Recovered/Resolved]
